FAERS Safety Report 5739474-2 (Version None)
Quarter: 2008Q2

REPORT INFORMATION
  Report Type: 
  Country: None (occurrence: None)
  Receive Date: 20080515
  Receipt Date: 20080507
  Transmission Date: 20081010
  Serious: Yes (Hospitalization)
  Sender: FDA-Public Use
  Company Number: PHHY2008AU07286

PATIENT
  Age: 62 Year
  Sex: Male

DRUGS (1)
  1. FAMVIR [Suspect]
     Dosage: 250 MG THREE TIMES/DAY
     Route: 048
     Dates: start: 20040225, end: 20040229

REACTIONS (5)
  - HAEMOPTYSIS [None]
  - JAUNDICE [None]
  - LIVER FUNCTION TEST ABNORMAL [None]
  - NAUSEA [None]
  - VOMITING [None]
